FAERS Safety Report 14399850 (Version 2)
Quarter: 2018Q1

REPORT INFORMATION
  Report Type: Spontaneous
  Country: US (occurrence: US)
  Receive Date: 20180117
  Receipt Date: 20180322
  Transmission Date: 20180509
  Serious: No
  Sender: FDA-Public Use
  Company Number: US-JNJFOC-20171118165

PATIENT
  Age: 86 Year
  Sex: Male

DRUGS (12)
  1. OMEPRAZOLE. [Concomitant]
     Active Substance: OMEPRAZOLE
     Route: 065
  2. LOSARTAN POTASSIUM. [Concomitant]
     Active Substance: LOSARTAN POTASSIUM
     Route: 065
  3. XGEVA [Concomitant]
     Active Substance: DENOSUMAB
     Dosage: 10 MG /15 ML
     Route: 058
  4. CENTRUM SILVER [Concomitant]
     Active Substance: MINERALS\VITAMINS
     Dosage: 10 MG /15 ML
     Route: 065
  5. METOPROLOL TARTRATE. [Concomitant]
     Active Substance: METOPROLOL TARTRATE
     Route: 065
  6. FEXOFENADINE [Concomitant]
     Active Substance: FEXOFENADINE\FEXOFENADINE HYDROCHLORIDE
     Route: 065
  7. AMLODIPINE BESYLATE. [Concomitant]
     Active Substance: AMLODIPINE BESYLATE
     Route: 065
  8. TRIAMCINOLONE ACETONIDE. [Concomitant]
     Active Substance: TRIAMCINOLONE ACETONIDE
     Route: 065
  9. LUPRON [Concomitant]
     Active Substance: LEUPROLIDE ACETATE
     Route: 030
  10. LACTULOSE. [Concomitant]
     Active Substance: LACTULOSE
     Dosage: 10 MG /15 ML
     Route: 065
  11. ZYTIGA [Suspect]
     Active Substance: ABIRATERONE ACETATE
     Indication: PROSTATE CANCER
     Route: 048
     Dates: start: 20150126
  12. FLUTICASONE. [Concomitant]
     Active Substance: FLUTICASONE
     Dosage: 120 MG /1.7 ML
     Route: 045

REACTIONS (6)
  - Balance disorder [Unknown]
  - Dry skin [Unknown]
  - Rash erythematous [Not Recovered/Not Resolved]
  - Neuropathy peripheral [Unknown]
  - Wound [Unknown]
  - Wound secretion [Unknown]

NARRATIVE: CASE EVENT DATE: 201711
